FAERS Safety Report 5195426-5 (Version None)
Quarter: 2006Q4

REPORT INFORMATION
  Report Type: 
  Country: None (occurrence: None)
  Receive Date: 20061229
  Receipt Date: 20061205
  Transmission Date: 20070319
  Serious: Yes (Other)
  Sender: FDA-Public Use
  Company Number: US-PFIZER INC-2006151861

PATIENT
  Sex: Female
  Weight: 49.9 kg

DRUGS (7)
  1. CHANTIX [Suspect]
     Dosage: DAILY DOSE:.5MG
  2. PLAVIX [Concomitant]
  3. ADVAIR DISKUS 100/50 [Concomitant]
  4. SPIRIVA [Concomitant]
  5. LISINOPRIL [Concomitant]
  6. ATENOLOL [Concomitant]
  7. CARTIA XT [Concomitant]

REACTIONS (3)
  - HYPERTENSION [None]
  - NAUSEA [None]
  - TRANSIENT ISCHAEMIC ATTACK [None]
